FAERS Safety Report 5227297-2 (Version None)
Quarter: 2007Q1

REPORT INFORMATION
  Report Type: 
  Country: None (occurrence: None)
  Receive Date: 20070202
  Receipt Date: 20070122
  Transmission Date: 20070707
  Serious: Yes (Other)
  Sender: FDA-Public Use
  Company Number: JP-ROCHE-479946

PATIENT
  Age: 13 Year
  Sex: Male

DRUGS (2)
  1. TAMIFLU [Suspect]
     Route: 048
     Dates: start: 20070121, end: 20070121
  2. CALONAL [Concomitant]
     Dosage: TAKEN AS NEEDED.
     Route: 048

REACTIONS (1)
  - HALLUCINATION [None]
